FAERS Safety Report 9303025 (Version 1)
Quarter: 2013Q2

REPORT INFORMATION
  Report Type: Spontaneous
  Country: US (occurrence: US)
  Receive Date: 20130522
  Receipt Date: 20130522
  Transmission Date: 20140414
  Serious: No
  Sender: FDA-Public Use
  Company Number: US-VERTEX PHARMACEUTICALS INC-2013-006254

PATIENT
  Age: 56 Year
  Sex: Male
  Weight: 160 kg

DRUGS (5)
  1. INCIVEK [Suspect]
     Indication: HEPATITIS C
     Dosage: 750 MG, TID
     Route: 048
     Dates: start: 20130510
  2. PEGASYS [Suspect]
     Indication: HEPATITIS C
     Dosage: 180 ?G, WEEKLY
     Route: 058
     Dates: start: 20130510
  3. RIBAPAK [Suspect]
     Indication: HEPATITIS C
     Dosage: 600 MG, BID
     Route: 048
     Dates: start: 20130510
  4. JANUVIA [Concomitant]
     Indication: DIABETES MELLITUS
     Dosage: 1 DF, QD
  5. METFORMIN [Concomitant]
     Indication: DIABETES MELLITUS
     Dosage: 1 DF, QD WITH OCCASIONAL EXTRA DOSE

REACTIONS (4)
  - Blood glucose fluctuation [Recovered/Resolved]
  - Influenza like illness [Not Recovered/Not Resolved]
  - Abdominal pain [Recovered/Resolved]
  - Anorectal discomfort [Unknown]
